FAERS Safety Report 9138118 (Version 2)
Quarter: 2013Q1

REPORT INFORMATION
  Report Type: Spontaneous
  Country: JP (occurrence: JP)
  Receive Date: 20130304
  Receipt Date: 20130313
  Transmission Date: 20140127
  Serious: Yes (Hospitalization)
  Sender: FDA-Public Use
  Company Number: JP-OTSUKA-JP-2013-10484

PATIENT
  Sex: 0

DRUGS (2)
  1. PLETAAL [Suspect]
     Indication: ISCHAEMIC STROKE
     Dosage: UNK
     Route: 048
  2. CLOPIDOGREL SULFATE [Concomitant]
     Indication: ISCHAEMIC STROKE
     Dosage: UNK
     Route: 048

REACTIONS (1)
  - Post procedural haemorrhage [Recovered/Resolved]
